FAERS Safety Report 22528812 (Version 7)
Quarter: 2024Q1

REPORT INFORMATION
  Report Type: Report from Study
  Country: DE (occurrence: DE)
  Receive Date: 20230607
  Receipt Date: 20240314
  Transmission Date: 20240409
  Serious: Yes (Other)
  Sender: FDA-Public Use
  Company Number: DE-SA-SAC20221021001457

PATIENT
  Age: 68 Year
  Sex: Male

DRUGS (86)
  1. CARFILZOMIB [Suspect]
     Active Substance: CARFILZOMIB
     Indication: Plasma cell myeloma refractory
     Dosage: UNK
     Route: 065
     Dates: start: 20220815, end: 20220815
  2. CARFILZOMIB [Suspect]
     Active Substance: CARFILZOMIB
     Dosage: 40 MILLIGRAM D2
     Route: 065
     Dates: start: 20220816, end: 20220816
  3. CARFILZOMIB [Suspect]
     Active Substance: CARFILZOMIB
     Dosage: 111 MILLIGRAM D8,D9
     Route: 065
     Dates: start: 20220822, end: 20220823
  4. CARFILZOMIB [Suspect]
     Active Substance: CARFILZOMIB
     Dosage: UNK D15,D16
     Route: 065
     Dates: start: 20220829, end: 20220911
  5. CARFILZOMIB [Suspect]
     Active Substance: CARFILZOMIB
     Dosage: 111 MILLIGRAM D1,D2
     Route: 065
     Dates: start: 20220912, end: 20220913
  6. CARFILZOMIB [Suspect]
     Active Substance: CARFILZOMIB
     Dosage: 111 MILLIGRAM D1 5,D16
     Route: 065
     Dates: start: 20220926, end: 20220927
  7. CARFILZOMIB [Suspect]
     Active Substance: CARFILZOMIB
     Dosage: 111 MILLIGRAM D1,D2
     Route: 065
     Dates: start: 20221010, end: 20221011
  8. CARFILZOMIB [Suspect]
     Active Substance: CARFILZOMIB
     Dosage: UNK D8
     Route: 065
     Dates: start: 20221012, end: 20221023
  9. CARFILZOMIB [Suspect]
     Active Substance: CARFILZOMIB
     Dosage: 111 MILLIGRAM D8,D9
     Route: 065
     Dates: start: 20221024, end: 20221025
  10. CARFILZOMIB [Suspect]
     Active Substance: CARFILZOMIB
     Dosage: UNK D15
     Route: 065
     Dates: start: 20221026, end: 20221106
  11. CARFILZOMIB [Suspect]
     Active Substance: CARFILZOMIB
     Dosage: 111 MILLIGRAM
     Route: 065
     Dates: start: 20221107, end: 20221108
  12. CARFILZOMIB [Suspect]
     Active Substance: CARFILZOMIB
     Dosage: 111 MILLIGRAM (D1, D2, D8, D9, D15, D16)
     Route: 065
     Dates: start: 20221108
  13. CARFILZOMIB [Suspect]
     Active Substance: CARFILZOMIB
     Dosage: 111 MILLIGRAM D1,D2
     Route: 065
     Dates: start: 20221121, end: 20221122
  14. CARFILZOMIB [Suspect]
     Active Substance: CARFILZOMIB
     Dosage: UNK D8
     Route: 065
     Dates: start: 20221123, end: 20221204
  15. CARFILZOMIB [Suspect]
     Active Substance: CARFILZOMIB
     Dosage: 111 MILLIGRAM (D8,D9,D15, D16)
     Route: 065
     Dates: start: 20221205, end: 20230103
  16. CARFILZOMIB [Suspect]
     Active Substance: CARFILZOMIB
     Dosage: UNK D1
     Route: 065
     Dates: start: 20230116, end: 20230116
  17. CARFILZOMIB [Suspect]
     Active Substance: CARFILZOMIB
     Dosage: 111 MILLIGRAM D1,D2
     Route: 065
     Dates: start: 20230117, end: 20230118
  18. CARFILZOMIB [Suspect]
     Active Substance: CARFILZOMIB
     Dosage: UNK D8
     Route: 065
     Dates: start: 20230119, end: 20230130
  19. CARFILZOMIB [Suspect]
     Active Substance: CARFILZOMIB
     Dosage: 111 MILLIGRAM D8,D9
     Route: 065
     Dates: start: 20230131, end: 20230201
  20. CARFILZOMIB [Suspect]
     Active Substance: CARFILZOMIB
     Dosage: UNK D15
     Route: 065
     Dates: start: 20230202, end: 20230213
  21. CARFILZOMIB [Suspect]
     Active Substance: CARFILZOMIB
     Dosage: 111 MILLIGRAM
     Route: 065
     Dates: start: 20230214, end: 20230215
  22. CARFILZOMIB [Suspect]
     Active Substance: CARFILZOMIB
     Dosage: 111 MILLIGRAM D1,D2
     Route: 065
     Dates: start: 20230228, end: 20230301
  23. CARFILZOMIB [Suspect]
     Active Substance: CARFILZOMIB
     Dosage: UNK D8
     Route: 065
     Dates: start: 20230302, end: 20230313
  24. CARFILZOMIB [Suspect]
     Active Substance: CARFILZOMIB
     Dosage: 111 MILLIGRAM
     Route: 065
     Dates: start: 20230314, end: 20230315
  25. CARFILZOMIB [Suspect]
     Active Substance: CARFILZOMIB
     Dosage: UNK D15,D16
     Route: 065
     Dates: start: 20230321, end: 20230322
  26. CARFILZOMIB [Suspect]
     Active Substance: CARFILZOMIB
     Dosage: 111 MILLIGRAM D1,D2
     Route: 065
     Dates: start: 20230404, end: 20230405
  27. CARFILZOMIB [Suspect]
     Active Substance: CARFILZOMIB
     Dosage: 111 MILLIGRAM
     Route: 065
     Dates: start: 20230418, end: 20230419
  28. CARFILZOMIB [Suspect]
     Active Substance: CARFILZOMIB
     Dosage: 111 MILLIGRAM D1,D2
     Route: 065
     Dates: start: 20230516, end: 20230517
  29. CARFILZOMIB [Suspect]
     Active Substance: CARFILZOMIB
     Dosage: 111 MILLIGRAM (D1, D2, D8, D9, D15, D16)
     Route: 065
     Dates: start: 20230531, end: 20230621
  30. CARFILZOMIB [Suspect]
     Active Substance: CARFILZOMIB
     Dosage: 111 MILLIGRAM (D1, D2, D8, D9, D15, D16)
     Route: 065
     Dates: start: 20230704, end: 20230802
  31. CARFILZOMIB [Suspect]
     Active Substance: CARFILZOMIB
     Dosage: 111 MILLIGRAM  D1,D2
     Route: 065
     Dates: start: 20230815, end: 20230816
  32. CARFILZOMIB [Suspect]
     Active Substance: CARFILZOMIB
     Dosage: 111 MILLIGRAM  D16
     Route: 065
     Dates: start: 20230802, end: 20230802
  33. DEXAMETHASONE [Suspect]
     Active Substance: DEXAMETHASONE
     Indication: Plasma cell myeloma refractory
     Dosage: 20 MG, D1, D2, D8, D9, D15, D16, D22
     Route: 065
     Dates: start: 20220815, end: 20220905
  34. DEXAMETHASONE [Suspect]
     Active Substance: DEXAMETHASONE
     Indication: Plasma cell myeloma refractory
     Dosage: 20 MG
     Route: 065
     Dates: start: 20220912, end: 20220913
  35. DEXAMETHASONE [Suspect]
     Active Substance: DEXAMETHASONE
     Dosage: UNK  D8,D9
     Route: 065
     Dates: start: 20220919, end: 20220925
  36. DEXAMETHASONE [Suspect]
     Active Substance: DEXAMETHASONE
     Dosage: 20 UNK
     Route: 065
     Dates: start: 20220926, end: 20220927
  37. DEXAMETHASONE [Suspect]
     Active Substance: DEXAMETHASONE
     Dosage: 20 MG D1,D2
     Route: 065
     Dates: start: 20221010, end: 20221011
  38. DEXAMETHASONE [Suspect]
     Active Substance: DEXAMETHASONE
     Dosage: UNK (D8)
     Route: 065
     Dates: start: 20221012, end: 20221023
  39. DEXAMETHASONE [Suspect]
     Active Substance: DEXAMETHASONE
     Dosage: UNK (D15 )
     Route: 065
     Dates: start: 20221026, end: 20221106
  40. DEXAMETHASONE [Suspect]
     Active Substance: DEXAMETHASONE
     Dosage: 20 MG
     Route: 065
     Dates: start: 20221107, end: 20221108
  41. DEXAMETHASONE [Suspect]
     Active Substance: DEXAMETHASONE
     Dosage: 20 MG
     Route: 065
     Dates: start: 20221121, end: 20221122
  42. DEXAMETHASONE [Suspect]
     Active Substance: DEXAMETHASONE
     Dosage: UNK (D8)
     Route: 065
     Dates: start: 20221123, end: 20221204
  43. DEXAMETHASONE [Suspect]
     Active Substance: DEXAMETHASONE
     Dosage: UNK (D15)
     Route: 065
     Dates: start: 20221207, end: 20230101
  44. DEXAMETHASONE [Suspect]
     Active Substance: DEXAMETHASONE
     Dosage: UNK (D1)
     Route: 065
     Dates: start: 20230116, end: 20230116
  45. DEXAMETHASONE [Suspect]
     Active Substance: DEXAMETHASONE
     Dosage: 20 MG
     Route: 065
     Dates: start: 20230117, end: 20230118
  46. DEXAMETHASONE [Suspect]
     Active Substance: DEXAMETHASONE
     Dosage: UNK (D8)
     Route: 065
     Dates: start: 20230119, end: 20230130
  47. DEXAMETHASONE [Suspect]
     Active Substance: DEXAMETHASONE
     Dosage: 20 MG
     Route: 065
     Dates: start: 20230131, end: 20230201
  48. DEXAMETHASONE [Suspect]
     Active Substance: DEXAMETHASONE
     Dosage: 20 MILLIGRAM ( D1,D2)
     Route: 065
     Dates: start: 20230228, end: 20230301
  49. DEXAMETHASONE [Suspect]
     Active Substance: DEXAMETHASONE
     Dosage: UNK (D8)
     Route: 065
     Dates: start: 20230302, end: 20230313
  50. DEXAMETHASONE [Suspect]
     Active Substance: DEXAMETHASONE
     Dosage: 20 MG
     Route: 065
     Dates: start: 20230314, end: 20230315
  51. DEXAMETHASONE [Suspect]
     Active Substance: DEXAMETHASONE
     Dosage: 20 MILLIGRAM
     Route: 065
     Dates: start: 20230321, end: 20230322
  52. DEXAMETHASONE [Suspect]
     Active Substance: DEXAMETHASONE
     Dosage: 20 MG
     Route: 065
     Dates: start: 20230404, end: 20230405
  53. DEXAMETHASONE [Suspect]
     Active Substance: DEXAMETHASONE
     Dosage: 20 MG
     Route: 065
     Dates: start: 20230418, end: 20230419
  54. DEXAMETHASONE [Suspect]
     Active Substance: DEXAMETHASONE
     Dosage: 20 MG
     Route: 065
     Dates: start: 20230228, end: 20230301
  55. DEXAMETHASONE [Suspect]
     Active Substance: DEXAMETHASONE
     Dosage: 20 MG
     Route: 065
     Dates: start: 20230321, end: 20230322
  56. DEXAMETHASONE [Suspect]
     Active Substance: DEXAMETHASONE
     Dosage: 20 MG
     Route: 065
     Dates: start: 20230516, end: 20230517
  57. DEXAMETHASONE [Suspect]
     Active Substance: DEXAMETHASONE
     Dosage: 20 MG (D8,D9,D15,D16)
     Route: 065
     Dates: start: 20230531, end: 20230621
  58. DEXAMETHASONE [Suspect]
     Active Substance: DEXAMETHASONE
     Dosage: 20 MG (D16)
     Route: 065
     Dates: start: 20230802, end: 20230802
  59. ISATUXIMAB [Suspect]
     Active Substance: ISATUXIMAB
     Indication: Plasma cell myeloma refractory
     Dosage: 760 MG, D1, D8, D15, D22
     Route: 065
     Dates: start: 20220815, end: 20220905
  60. ISATUXIMAB [Suspect]
     Active Substance: ISATUXIMAB
     Indication: Plasma cell myeloma refractory
     Dosage: 1520 MILLIGRAM (760 MG, BIW)
     Route: 065
     Dates: start: 20220912, end: 20220926
  61. ISATUXIMAB [Suspect]
     Active Substance: ISATUXIMAB
     Dosage: 1520 MILLIGRAM (760 MG, BIW )
     Route: 065
     Dates: start: 20221010, end: 20221010
  62. ISATUXIMAB [Suspect]
     Active Substance: ISATUXIMAB
     Dosage: UNK (D15)
     Route: 065
     Dates: start: 20221011, end: 20221106
  63. ISATUXIMAB [Suspect]
     Active Substance: ISATUXIMAB
     Dosage: 1520 MILLIGRAM (760 MG, BIW)
     Route: 065
     Dates: start: 20221121, end: 20221121
  64. ISATUXIMAB [Suspect]
     Active Substance: ISATUXIMAB
     Dosage: UNK (D15)
     Route: 065
     Dates: start: 20221122, end: 20230101
  65. ISATUXIMAB [Suspect]
     Active Substance: ISATUXIMAB
     Dosage: 1520 MILLIGRAM (760 MG, BIW)
     Route: 065
     Dates: start: 20230102, end: 20230102
  66. ISATUXIMAB [Suspect]
     Active Substance: ISATUXIMAB
     Dosage: UNK ( D1, D15 )
     Route: 065
     Dates: start: 20230116, end: 20230116
  67. ISATUXIMAB [Suspect]
     Active Substance: ISATUXIMAB
     Dosage: 1520 MILLIGRAM (760 MILLIGRAM, BIW)
     Route: 065
     Dates: start: 20230117, end: 20230117
  68. ISATUXIMAB [Suspect]
     Active Substance: ISATUXIMAB
     Dosage: UNK (D15)
     Route: 065
     Dates: start: 20230202, end: 20230213
  69. ISATUXIMAB [Suspect]
     Active Substance: ISATUXIMAB
     Dosage: 1520 MILLIGRAM (760 MG, BIW ,D15, D16)
     Route: 065
     Dates: start: 20230214, end: 20230215
  70. ISATUXIMAB [Suspect]
     Active Substance: ISATUXIMAB
     Dosage: 1520 MILLIGRAM (760 MG, BIW)
     Route: 065
     Dates: start: 20230228, end: 20230301
  71. ISATUXIMAB [Suspect]
     Active Substance: ISATUXIMAB
     Dosage: UNK (D15)
     Route: 065
     Dates: start: 20230321, end: 20230321
  72. ISATUXIMAB [Suspect]
     Active Substance: ISATUXIMAB
     Dosage: 1520 MILLIGRAM (760 MILLIGRAM, BIW)
     Route: 065
     Dates: start: 20230404, end: 20230405
  73. ISATUXIMAB [Suspect]
     Active Substance: ISATUXIMAB
     Dosage: 1520 MILLIGRAM (760 MILLIGRAM, BIW)
     Route: 065
     Dates: start: 20230502, end: 20230503
  74. ISATUXIMAB [Suspect]
     Active Substance: ISATUXIMAB
     Dosage: 1520 MILLIGRAM (760 MILLIGRAM, BIW)
     Route: 065
     Dates: start: 20230516, end: 20230620
  75. ISATUXIMAB [Suspect]
     Active Substance: ISATUXIMAB
     Dosage: 760 MILLIGRAM (D1)
     Route: 065
     Dates: start: 20230704, end: 20230801
  76. ISATUXIMAB [Suspect]
     Active Substance: ISATUXIMAB
     Dosage: 760 MILLIGRAM (D1)
     Route: 065
     Dates: start: 20230815, end: 20230815
  77. CLEMASTINE [Concomitant]
     Active Substance: CLEMASTINE
     Indication: Prophylaxis
     Dosage: UNK
     Route: 065
     Dates: start: 20220815
  78. PLATELETS [Concomitant]
     Active Substance: HUMAN PLATELET, ALLOGENIC
     Indication: Thrombocytopenia
     Dosage: UNK
     Dates: start: 20220919
  79. ACYCLOVIR [Concomitant]
     Active Substance: ACYCLOVIR
     Indication: Infection prophylaxis
     Dosage: UNK
     Dates: start: 20201123
  80. ACETAMINOPHEN [Concomitant]
     Active Substance: ACETAMINOPHEN
     Indication: Prophylaxis
     Dosage: UNK
     Dates: start: 20220815
  81. COTRIM [Concomitant]
     Active Substance: SULFAMETHOXAZOLE\TRIMETHOPRIM
     Indication: Aortic aneurysm
     Dosage: UNK
     Route: 065
     Dates: start: 20201123
  82. METFORMIN [Concomitant]
     Active Substance: METFORMIN HYDROCHLORIDE
     Indication: Diabetes mellitus
     Dosage: UNK
     Dates: start: 2015
  83. PANTOPRAZOLE SODIUM [Concomitant]
     Active Substance: PANTOPRAZOLE SODIUM
     Indication: Gastritis prophylaxis
     Dosage: UNK
     Dates: start: 20230215
  84. BEZAFIBRATE [Concomitant]
     Active Substance: BEZAFIBRATE
     Indication: Hyperlipidaemia
     Dosage: UNK
     Route: 065
     Dates: start: 2016
  85. OMEPRAZOLE [Concomitant]
     Active Substance: OMEPRAZOLE
     Indication: Abdominal pain upper
     Dosage: UNK
     Route: 065
     Dates: start: 20230103
  86. IBANDRONATE SODIUM [Concomitant]
     Active Substance: IBANDRONATE SODIUM
     Indication: Prophylaxis
     Dosage: UNK
     Route: 065
     Dates: start: 20170630

REACTIONS (7)
  - Anaphylactic reaction [Recovered/Resolved]
  - Thrombocytopenia [Not Recovered/Not Resolved]
  - Abdominal pain upper [Unknown]
  - Anaemia [Recovered/Resolved]
  - Influenza [Recovered/Resolved]
  - Influenza [Recovered/Resolved]
  - Diarrhoea [Not Recovered/Not Resolved]

NARRATIVE: CASE EVENT DATE: 20220919
